FAERS Safety Report 11552974 (Version 1)
Quarter: 2015Q3

REPORT INFORMATION
  Report Type: Spontaneous
  Country: US (occurrence: None)
  Receive Date: 20150924
  Receipt Date: 20150924
  Transmission Date: 20151125
  Serious: No
  Sender: FDA-Public Use
  Company Number: None

PATIENT
  Age: 52 Year

DRUGS (10)
  1. TRIAMT/HCTZ [Concomitant]
     Active Substance: HYDROCHLOROTHIAZIDE\TRIAMTERENE
  2. XYREM [Concomitant]
     Active Substance: SODIUM OXYBATE
  3. OMEPRAZOLE. [Concomitant]
     Active Substance: OMEPRAZOLE
  4. HYDROXYCLOR [Concomitant]
  5. MELOXICAM. [Concomitant]
     Active Substance: MELOXICAM
  6. DEPLIN [Concomitant]
     Active Substance: LEVOMEFOLATE CALCIUM
  7. ORENCIA [Suspect]
     Active Substance: ABATACEPT
     Indication: RHEUMATOID ARTHRITIS
     Route: 058
  8. BUPROPION. [Concomitant]
     Active Substance: BUPROPION
  9. FLUOXETINE [Concomitant]
     Active Substance: FLUOXETINE\FLUOXETINE HYDROCHLORIDE
  10. VENTOLIN HFA [Concomitant]
     Active Substance: ALBUTEROL SULFATE

REACTIONS (1)
  - Pruritus [None]
